FAERS Safety Report 4505290-2 (Version None)
Quarter: 2004Q4

REPORT INFORMATION
  Report Type: 
  Country: None (occurrence: None)
  Receive Date: 20041118
  Receipt Date: 20041118
  Transmission Date: 20050328
  Serious: Yes (Hospitalization)
  Sender: FDA-Public Use
  Company Number: None

PATIENT
  Sex: Female

DRUGS (11)
  1. BUPIVACAINE [Suspect]
     Dosage: INJ
     Dates: start: 20040811
  2. PREVACID [Concomitant]
  3. TRAZODONE HCL [Concomitant]
  4. LEXAPRO [Concomitant]
  5. COLACE [Concomitant]
  6. CYCLOBENZAPRINE [Concomitant]
  7. ALPRAZOLAM [Concomitant]
  8. CEFAZOLIN [Concomitant]
  9. FENTANYL [Concomitant]
  10. METOCLOPRAMIDE [Concomitant]
  11. MIDAZOLAM HCL [Concomitant]

REACTIONS (3)
  - BACK PAIN [None]
  - DELAYED RECOVERY FROM ANAESTHESIA [None]
  - POST PROCEDURAL COMPLICATION [None]
